FAERS Safety Report 8556746-7 (Version None)
Quarter: 2012Q3

REPORT INFORMATION
  Report Type: 
  Country: None (occurrence: None)
  Receive Date: 20120801
  Receipt Date: 20120711
  Transmission Date: 20120928
  Serious: No
  Sender: FDA-Public Use
  Company Number: US-009507513-2012SP031284

PATIENT

DRUGS (2)
  1. NEXPLANON [Suspect]
     Indication: CONTRACEPTION
     Dosage: 3 YEAR IMPLANT
     Dates: start: 20120507, end: 20120606
  2. NEXPLANON [Suspect]
     Dosage: UNK
     Dates: start: 20120606

REACTIONS (1)
  - MEDICAL DEVICE COMPLICATION [None]
